FAERS Safety Report 19823997 (Version 1)
Quarter: 2021Q3

REPORT INFORMATION
  Report Type: Spontaneous
  Country: FR (occurrence: FR)
  Receive Date: 20210914
  Receipt Date: 20210914
  Transmission Date: 20211014
  Serious: Yes (Death, Other)
  Sender: FDA-Public Use
  Company Number: FR-AUROBINDO-AUR-APL-2021-038574

PATIENT
  Age: 52 Year
  Sex: Male

DRUGS (3)
  1. FLUCYTOSINE. [Suspect]
     Active Substance: FLUCYTOSINE
     Indication: CANDIDA INFECTION
     Dosage: UNK
     Route: 065
  2. FLUCONAZOLE. [Suspect]
     Active Substance: FLUCONAZOLE
     Indication: CANDIDA INFECTION
     Dosage: UNK
     Route: 065
  3. AMPHOTERICIN B. [Suspect]
     Active Substance: AMPHOTERICIN B
     Indication: CANDIDA INFECTION
     Dosage: UNK
     Route: 065

REACTIONS (1)
  - Respiratory distress [Fatal]
